FAERS Safety Report 23243575 (Version 1)
Quarter: 2023Q4

REPORT INFORMATION
  Report Type: Report from Study
  Country: PE (occurrence: PE)
  Receive Date: 20231130
  Receipt Date: 20231130
  Transmission Date: 20240110
  Serious: Yes (Other)
  Sender: FDA-Public Use
  Company Number: PE-JNJFOC-20231166435

PATIENT
  Age: 71 Year
  Sex: Male

DRUGS (1)
  1. DARZALEX [Suspect]
     Active Substance: DARATUMUMAB
     Indication: Plasma cell myeloma
     Dosage: LAST DRUG APPLICATION: 06-NOV-2023
     Route: 042
     Dates: start: 20230613, end: 20231106

REACTIONS (1)
  - Leukopenia [Not Recovered/Not Resolved]
